FAERS Safety Report 22129694 (Version 2)
Quarter: 2023Q2

REPORT INFORMATION
  Report Type: Spontaneous
  Country: JP (occurrence: JP)
  Receive Date: 20230323
  Receipt Date: 20230407
  Transmission Date: 20230722
  Serious: Yes (Hospitalization)
  Sender: FDA-Public Use
  Company Number: JP-002147023-NVSJ2023JP004860

PATIENT

DRUGS (1)
  1. JADENU [Suspect]
     Active Substance: DEFERASIROX
     Indication: Myelodysplastic syndrome
     Dosage: UNK
     Route: 048

REACTIONS (5)
  - Myelodysplastic syndrome [Unknown]
  - Disease progression [Unknown]
  - Dysphagia [Unknown]
  - Oropharyngeal pain [Unknown]
  - Infection [Unknown]
